FAERS Safety Report 9023098 (Version 1)
Quarter: 2013Q1

REPORT INFORMATION
  Report Type: Spontaneous
  Country: None (occurrence: US)
  Receive Date: 20130120
  Receipt Date: 20130120
  Transmission Date: 20140127
  Serious: No
  Sender: FDA-Public Use
  Company Number: US-ALLERGAN-1213405US

PATIENT
  Age: 49 Year
  Sex: Female

DRUGS (8)
  1. BOTOX COSMETIC [Suspect]
     Indication: SKIN WRINKLING
     Dosage: UNK, SINGLE
     Route: 030
     Dates: start: 20120823, end: 20120823
  2. BOTOX COSMETIC [Suspect]
     Indication: SKIN WRINKLING
     Dosage: UNK
     Route: 030
     Dates: start: 20120809, end: 20120809
  3. BOTOX COSMETIC [Suspect]
     Indication: SKIN WRINKLING
     Dosage: 10 UNITS, SINGLE
     Route: 030
     Dates: start: 201204, end: 201204
  4. BOTOX COSMETIC [Suspect]
     Indication: SKIN WRINKLING
     Dosage: 13 UNITS, SINGLE
     Route: 030
     Dates: start: 201204, end: 201204
  5. BOTOX COSMETIC [Suspect]
     Dosage: 7 UNITS, SINGLE
     Route: 030
     Dates: start: 201204, end: 201204
  6. BOTOX COSMETIC [Suspect]
     Dosage: 8 UNITS, SINGLE
     Route: 030
     Dates: start: 201206, end: 201206
  7. BOTOX COSMETIC [Suspect]
     Dosage: 7 UNITS, SINGLE
     Route: 030
     Dates: start: 201206, end: 201206
  8. DYSPORT                            /01136801/ [Concomitant]
     Indication: SKIN WRINKLING

REACTIONS (5)
  - Incorrect dose administered [Unknown]
  - Drug ineffective [Unknown]
  - Drug ineffective [Unknown]
  - Drug ineffective [Unknown]
  - Drug ineffective [Unknown]
